FAERS Safety Report 6207593-2 (Version None)
Quarter: 2009Q2

REPORT INFORMATION
  Report Type: 
  Country: None (occurrence: None)
  Receive Date: 20090528
  Receipt Date: 20090520
  Transmission Date: 20091009
  Serious: Yes (Death, Hospitalization)
  Sender: FDA-Public Use
  Company Number: IT-GENENTECH-283616

PATIENT
  Sex: Female

DRUGS (8)
  1. BEVACIZUMAB [Suspect]
     Indication: BREAST CANCER
     Dosage: 780 MG, Q2W
     Route: 042
     Dates: start: 20090217
  2. PACLITAXEL [Suspect]
     Indication: BREAST CANCER
     Dosage: 162 MG, Q3W
     Route: 042
     Dates: start: 20090217
  3. RANITIDINE [Concomitant]
     Indication: PREMEDICATION
     Dosage: UNK
     Dates: start: 20090217
  4. HYDROCORTISONE [Concomitant]
     Indication: PREMEDICATION
     Dosage: UNK
     Dates: start: 20090217
  5. DEXAMETHASONE 4MG TAB [Concomitant]
     Indication: PREMEDICATION
     Dosage: UNK
     Dates: start: 20090217
  6. CHLORPHENIRAMINE MALEATE [Concomitant]
     Indication: PREMEDICATION
     Dosage: UNK
     Dates: start: 20090217
  7. TROPISETRON [Concomitant]
     Indication: PREMEDICATION
     Dosage: UNK
     Dates: start: 20090217
  8. PREDNISONE [Concomitant]
     Indication: PREMEDICATION
     Dosage: UNK
     Dates: start: 20090216

REACTIONS (1)
  - ACUTE PULMONARY OEDEMA [None]
